FAERS Safety Report 23277238 (Version 1)
Quarter: 2023Q4

REPORT INFORMATION
  Report Type: Report from Study
  Country: US (occurrence: None)
  Receive Date: 20231208
  Receipt Date: 20231208
  Transmission Date: 20240110
  Serious: Yes (Hospitalization)
  Sender: FDA-Public Use
  Company Number: 2023A275785

PATIENT
  Sex: Female

DRUGS (1)
  1. TAGRISSO [Suspect]
     Active Substance: OSIMERTINIB
     Dosage: UNKNOWN
     Route: 048
     Dates: start: 20231017

REACTIONS (4)
  - May-Thurner syndrome [Unknown]
  - Dyspnoea [Unknown]
  - Anaemia [Unknown]
  - Cough [Unknown]
